FAERS Safety Report 8809535 (Version 1)
Quarter: 2012Q4

REPORT INFORMATION
  Report Type: 
  Country: US (occurrence: US)
  Receive Date: 20120926
  Receipt Date: 20120926
  Transmission Date: 20130627
  Serious: Yes (Other)
  Sender: FDA-Public Use
  Company Number: US-PFIZER INC-2012235038

PATIENT
  Age: 68 Year
  Sex: Male
  Weight: 83 kg

DRUGS (1)
  1. ATORVASTATIN CALCIUM [Suspect]
     Indication: BLOOD CHOLESTEROL INCREASED
     Dosage: 10 mg, 1x/day
     Route: 048
     Dates: start: 2012, end: 20120916

REACTIONS (5)
  - Gout [Recovering/Resolving]
  - Feeling abnormal [Recovering/Resolving]
  - Arthralgia [Recovering/Resolving]
  - Arthralgia [Recovering/Resolving]
  - Musculoskeletal pain [Recovering/Resolving]
